FAERS Safety Report 18267134 (Version 1)
Quarter: 2020Q3

REPORT INFORMATION
  Report Type: Spontaneous
  Country: US (occurrence: US)
  Receive Date: 20200914
  Receipt Date: 20200914
  Transmission Date: 20201103
  Serious: No
  Sender: FDA-Public Use
  Company Number: None

PATIENT
  Age: 30 Year
  Sex: Female
  Weight: 52.2 kg

DRUGS (3)
  1. AZELASTINE HCL [Suspect]
     Active Substance: AZELASTINE HYDROCHLORIDE
     Indication: PULMONARY CONGESTION
     Dosage: ?          QUANTITY:200 SPRAY(S);OTHER ROUTE:NASAL SPRAY?
     Dates: start: 20200908
  2. FLUTICASONE. [Suspect]
     Active Substance: FLUTICASONE
  3. AZELASTINE HCL [Suspect]
     Active Substance: AZELASTINE HYDROCHLORIDE
     Indication: HYPERSENSITIVITY
     Dosage: ?          QUANTITY:200 SPRAY(S);OTHER ROUTE:NASAL SPRAY?
     Dates: start: 20200908

REACTIONS (2)
  - Weight increased [None]
  - Fatigue [None]

NARRATIVE: CASE EVENT DATE: 20200914
